FAERS Safety Report 14403887 (Version 1)
Quarter: 2018Q1

REPORT INFORMATION
  Report Type: Spontaneous
  Country: DK (occurrence: DK)
  Receive Date: 20180117
  Receipt Date: 20180117
  Transmission Date: 20180509
  Serious: Yes (Other)
  Sender: FDA-Public Use
  Company Number: DK-TEVA-2018-DK-843880

PATIENT
  Age: 4 Year
  Sex: Female

DRUGS (1)
  1. BUDESONIDE TEVA [Suspect]
     Active Substance: BUDESONIDE
     Indication: CROUP INFECTIOUS
     Dosage: .5 MILLIGRAM/MILLILITERS DAILY;
     Dates: start: 20171002, end: 20171002

REACTIONS (4)
  - Cyanosis [Recovered/Resolved]
  - Rash [Recovered/Resolved]
  - Anaphylactic reaction [Recovered/Resolved]
  - Dyspnoea [Recovered/Resolved]

NARRATIVE: CASE EVENT DATE: 20171002
